FAERS Safety Report 5686760-0 (Version None)
Quarter: 2008Q1

REPORT INFORMATION
  Report Type: 
  Country: None (occurrence: None)
  Receive Date: 20080328
  Receipt Date: 20070606
  Transmission Date: 20080703
  Serious: No
  Sender: FDA-Public Use
  Company Number: US-BAYER-US-2007-021291

PATIENT
  Age: 22 Year
  Sex: Female
  Weight: 43 kg

DRUGS (2)
  1. MIRENA [Suspect]
     Indication: CONTRACEPTION
     Route: 015
     Dates: start: 20070320
  2. ZOFRAN [Concomitant]
     Dates: start: 20070401

REACTIONS (4)
  - ABDOMINAL PAIN [None]
  - NAUSEA [None]
  - VAGINAL HAEMORRHAGE [None]
  - VOMITING [None]
